FAERS Safety Report 17390268 (Version 1)
Quarter: 2020Q1

REPORT INFORMATION
  Report Type: Spontaneous
  Country: US (occurrence: US)
  Receive Date: 20200207
  Receipt Date: 20200207
  Transmission Date: 20200409
  Serious: Yes (Other)
  Sender: FDA-Public Use
  Company Number: US-AMERICAN REGENT INC-2020000217

PATIENT
  Age: 55 Year
  Sex: Male
  Weight: 85 kg

DRUGS (14)
  1. LIDOCAINE HCL INJECTION, USP (0625-25) [Suspect]
     Active Substance: LIDOCAINE HYDROCHLORIDE
     Dosage: 1 MG/KG/HR
  2. METOPROLOL SUCCINATE. [Concomitant]
     Active Substance: METOPROLOL SUCCINATE
     Indication: PRODUCT USED FOR UNKNOWN INDICATION
     Dosage: 25 MILLIGRAM, QD
     Route: 048
  3. HEPARIN [Concomitant]
     Active Substance: HEPARIN SODIUM
     Indication: PRODUCT USED FOR UNKNOWN INDICATION
     Dosage: 5000 U Q8H
     Route: 058
  4. VANCOMYCIN [Concomitant]
     Active Substance: VANCOMYCIN
     Indication: PRODUCT USED FOR UNKNOWN INDICATION
     Dosage: 1.25 GRAM, Q12H
     Route: 042
  5. ABACAVIR W/LAMIVUDINE [Concomitant]
     Active Substance: ABACAVIR\LAMIVUDINE
     Indication: HIV INFECTION
     Dosage: 1 TABLET QD
     Route: 048
  6. LIDOCAINE HCL INJECTION, USP (0625-25) [Suspect]
     Active Substance: LIDOCAINE HYDROCHLORIDE
     Indication: PROCEDURAL PAIN
     Dosage: 120 MILLIGRAM
  7. LIDOCAINE HCL INJECTION, USP (0625-25) [Suspect]
     Active Substance: LIDOCAINE HYDROCHLORIDE
     Dosage: 2 MG/KG/HR FOR 2 HOURS (TOTAL DOSE 460 MG WITH BOLUS)
  8. ATAZANAVIR. [Suspect]
     Active Substance: ATAZANAVIR
     Indication: HIV INFECTION
     Dosage: 300 MILLIGRAM, QD
     Route: 048
  9. RITONAVIR. [Suspect]
     Active Substance: RITONAVIR
     Indication: HIV INFECTION
     Dosage: 100 MILLIGRAM, QD
     Route: 048
  10. CANDESARTAN. [Concomitant]
     Active Substance: CANDESARTAN
     Indication: PRODUCT USED FOR UNKNOWN INDICATION
     Dosage: 16 MILLIGRAM, QD
     Route: 048
  11. FENTANYL. [Concomitant]
     Active Substance: FENTANYL
     Indication: POSTOPERATIVE ANALGESIA
     Dosage: 30 UG EVERY 10 MINUTES, PATIENT-CONTROLLED ANALGESIA
     Route: 042
  12. ROSUVASTATIN. [Concomitant]
     Active Substance: ROSUVASTATIN
     Indication: PRODUCT USED FOR UNKNOWN INDICATION
     Dosage: 40 MILLIGRAM, QPM
     Route: 048
  13. CIPROFLOXACIN. [Concomitant]
     Active Substance: CIPROFLOXACIN
     Indication: PRODUCT USED FOR UNKNOWN INDICATION
     Dosage: 400 MILLIGRAM Q12H
     Route: 042
  14. ASPIRIN. [Concomitant]
     Active Substance: ASPIRIN
     Indication: PRODUCT USED FOR UNKNOWN INDICATION
     Dosage: 325 MILLIGRAM, QD
     Route: 048

REACTIONS (5)
  - Drug interaction [Unknown]
  - Unresponsive to stimuli [Recovered/Resolved]
  - Drug level increased [Unknown]
  - Product use in unapproved indication [Unknown]
  - Toxicity to various agents [Unknown]
